FAERS Safety Report 6233534-8 (Version None)
Quarter: 2009Q2

REPORT INFORMATION
  Report Type: 
  Country: None (occurrence: None)
  Receive Date: 20090615
  Receipt Date: 20090610
  Transmission Date: 20091009
  Serious: Yes (Hospitalization)
  Sender: FDA-Public Use
  Company Number: 2008AL006878

PATIENT
  Age: 59 Year
  Sex: Female
  Weight: 100.6985 kg

DRUGS (6)
  1. DIGOXIN [Suspect]
     Indication: CARDIAC FAILURE CONGESTIVE
     Dosage: 0.25MG, DAILY, PO
     Route: 048
     Dates: start: 20050101, end: 20090501
  2. LAXIT [Concomitant]
  3. METOPROLOL SUCCINATE [Concomitant]
  4. DIOVAN [Concomitant]
  5. POTASSIUM CHLORIDE [Concomitant]
  6. HYDRALAZINE HCL [Concomitant]

REACTIONS (19)
  - ANOREXIA [None]
  - ANXIETY [None]
  - ARRHYTHMIA [None]
  - CHEST DISCOMFORT [None]
  - DIABETES MELLITUS [None]
  - DRUG TOXICITY [None]
  - DRY MOUTH [None]
  - DYSGEUSIA [None]
  - HALO VISION [None]
  - HEADACHE [None]
  - INJURY [None]
  - MUSCLE SPASMS [None]
  - NAUSEA [None]
  - OVERDOSE [None]
  - PAIN [None]
  - URINARY INCONTINENCE [None]
  - URINARY TRACT DISORDER [None]
  - VISION BLURRED [None]
  - WEIGHT DECREASED [None]
